FAERS Safety Report 13393860 (Version 2)
Quarter: 2017Q2

REPORT INFORMATION
  Report Type: Spontaneous
  Country: None (occurrence: JP)
  Receive Date: 20170331
  Receipt Date: 20170410
  Transmission Date: 20170830
  Serious: Yes (Other)
  Sender: FDA-Public Use
  Company Number: JP-ALLERGAN-1712557US

PATIENT
  Age: 64 Year
  Sex: Female

DRUGS (5)
  1. ACETAMINOPHEN. [Suspect]
     Active Substance: ACETAMINOPHEN
     Indication: PRODUCT USED FOR UNKNOWN INDICATION
     Dosage: 400 MG, QD
     Route: 048
     Dates: start: 20170109, end: 20170111
  2. URSODEOXYCHOLIC ACID - BP [Suspect]
     Active Substance: URSODIOL
     Indication: PRODUCT USED FOR UNKNOWN INDICATION
     Dosage: 600 MG, QD
     Route: 048
     Dates: start: 20170109
  3. SPIRONOLACTONE. [Suspect]
     Active Substance: SPIRONOLACTONE
     Indication: PRODUCT USED FOR UNKNOWN INDICATION
     Dosage: 25 MG, QD
     Route: 048
     Dates: start: 20170109
  4. AMINOLEBAN EN [Suspect]
     Active Substance: UNSPECIFIED INGREDIENT
     Indication: NUTRITIONAL SUPPLEMENTATION
  5. AMINOLEBAN EN [Suspect]
     Active Substance: UNSPECIFIED INGREDIENT
     Indication: HYPOALBUMINAEMIA
     Dosage: 150 G, QD
     Route: 048
     Dates: start: 20170109

REACTIONS (1)
  - Blood glucose increased [Not Recovered/Not Resolved]

NARRATIVE: CASE EVENT DATE: 20170109
